FAERS Safety Report 15173024 (Version 1)
Quarter: 2018Q3

REPORT INFORMATION
  Report Type: Spontaneous
  Country: US (occurrence: US)
  Receive Date: 20180720
  Receipt Date: 20180720
  Transmission Date: 20181010
  Serious: No
  Sender: FDA-Public Use
  Company Number: US-SA-2018SA166821

PATIENT
  Age: 63 Year
  Sex: Male

DRUGS (2)
  1. LOVENOX [Suspect]
     Active Substance: ENOXAPARIN SODIUM
     Dosage: 80 MG, QD
     Dates: start: 20180606
  2. LOVENOX [Suspect]
     Active Substance: ENOXAPARIN SODIUM
     Indication: DEEP VEIN THROMBOSIS
     Dosage: 60 MG, QD
     Dates: start: 20180507

REACTIONS (4)
  - Nausea [Unknown]
  - Red blood cell count decreased [Unknown]
  - Fatigue [Unknown]
  - Hypoaesthesia [Unknown]
